FAERS Safety Report 9127713 (Version 1)
Quarter: 2013Q1

REPORT INFORMATION
  Report Type: Spontaneous
  Country: US (occurrence: US)
  Receive Date: 20130228
  Receipt Date: 20130228
  Transmission Date: 20140127
  Serious: No
  Sender: FDA-Public Use
  Company Number: US-GLAXOSMITHKLINE-A0995108A

PATIENT
  Age: 55 Year
  Sex: Female

DRUGS (7)
  1. LAMOTRIGINE [Suspect]
     Indication: BIPOLAR DISORDER
     Dosage: 100MG TWICE PER DAY
     Route: 048
     Dates: start: 2010, end: 2010
  2. PAROXETINE [Concomitant]
  3. KLONOPIN [Concomitant]
  4. VYTORIN [Concomitant]
  5. TRICOR [Concomitant]
  6. PREMARIN [Concomitant]
  7. AMLODIPINE [Concomitant]

REACTIONS (2)
  - Hypersensitivity [Recovered/Resolved]
  - Local swelling [Recovered/Resolved]
